FAERS Safety Report 23743641 (Version 1)
Quarter: 2024Q2

REPORT INFORMATION
  Report Type: Report from Study
  Country: CA (occurrence: CA)
  Receive Date: 20240415
  Receipt Date: 20240415
  Transmission Date: 20240716
  Serious: Yes (Death)
  Sender: FDA-Public Use
  Company Number: CA-BAUSCH-BL-2024-005902

PATIENT
  Age: 57 Year
  Sex: Male

DRUGS (1)
  1. RIFAXIMIN [Suspect]
     Active Substance: RIFAXIMIN
     Indication: Hepatic encephalopathy
     Route: 065
     Dates: start: 20230223, end: 20240324

REACTIONS (1)
  - Death [Fatal]

NARRATIVE: CASE EVENT DATE: 20240324
